FAERS Safety Report 20822043 (Version 1)
Quarter: 2022Q2

REPORT INFORMATION
  Report Type: Spontaneous
  Country: US (occurrence: None)
  Receive Date: 20220512
  Receipt Date: 20220512
  Transmission Date: 20220721
  Serious: Yes (Disabling, Other)
  Sender: FDA-Public Use
  Company Number: None

PATIENT
  Age: 48 Year
  Sex: Male
  Weight: 85.5 kg

DRUGS (1)
  1. BOTOX [Suspect]
     Active Substance: ONABOTULINUMTOXINA
     Indication: Migraine
     Dosage: OTHER FREQUENCY : 3 MONTHS;?
     Route: 058
     Dates: start: 20220427, end: 20220427

REACTIONS (10)
  - Feeling abnormal [None]
  - Anxiety [None]
  - Nausea [None]
  - Eating disorder [None]
  - Insomnia [None]
  - Weight decreased [None]
  - Tremor [None]
  - Muscular weakness [None]
  - Drug withdrawal syndrome [None]
  - Asthenia [None]

NARRATIVE: CASE EVENT DATE: 20220427
